FAERS Safety Report 19156592 (Version 2)
Quarter: 2021Q3

REPORT INFORMATION
  Report Type: Report from Study
  Country: None (occurrence: CA)
  Receive Date: 20210419
  Receipt Date: 20210926
  Transmission Date: 20211014
  Serious: Yes (Other)
  Sender: FDA-Public Use
  Company Number: CA-ABBVIE-21K-028-3856020-00

PATIENT
  Sex: Female

DRUGS (4)
  1. RINVOQ [Suspect]
     Active Substance: UPADACITINIB
     Route: 048
     Dates: start: 202107
  2. RINVOQ [Suspect]
     Active Substance: UPADACITINIB
     Indication: RHEUMATOID ARTHRITIS
     Route: 048
     Dates: start: 20201129, end: 202107
  3. COVID?19 VACCINE [Concomitant]
     Dates: start: 202107, end: 202107
  4. COVID?19 VACCINE [Concomitant]
     Indication: COVID-19 IMMUNISATION
     Dates: start: 2021, end: 2021

REACTIONS (13)
  - Cognitive disorder [Unknown]
  - Joint lock [Unknown]
  - Skin swelling [Unknown]
  - Joint swelling [Unknown]
  - Noninfective encephalitis [Unknown]
  - Muscular weakness [Unknown]
  - Pain in extremity [Unknown]
  - Memory impairment [Unknown]
  - Arthralgia [Unknown]
  - Spinal stenosis [Unknown]
  - Joint injury [Unknown]
  - Rheumatoid arthritis [Unknown]
  - Tendon disorder [Unknown]

NARRATIVE: CASE EVENT DATE: 2021
